FAERS Safety Report 4726800-6 (Version None)
Quarter: 2005Q3

REPORT INFORMATION
  Report Type: 
  Country: None (occurrence: None)
  Receive Date: 20050725
  Receipt Date: 20050426
  Transmission Date: 20060218
  Serious: No
  Sender: FDA-Public Use
  Company Number: USA050496618

PATIENT
  Sex: Male

DRUGS (1)
  1. STRATTERA [Suspect]
     Indication: ATTENTION DEFICIT/HYPERACTIVITY DISORDER
     Dosage: 80 MG DAY
     Dates: start: 20050110

REACTIONS (8)
  - BLOOD URINE PRESENT [None]
  - EPIDIDYMITIS [None]
  - GENERAL SYMPTOM [None]
  - HEADACHE [None]
  - INSOMNIA [None]
  - STOMACH DISCOMFORT [None]
  - TESTICULAR MASS [None]
  - TESTICULAR PAIN [None]
